FAERS Safety Report 7808176-0 (Version None)
Quarter: 2011Q4

REPORT INFORMATION
  Report Type: 
  Country: None (occurrence: None)
  Receive Date: 20111011
  Receipt Date: 20111004
  Transmission Date: 20120403
  Serious: Yes (Hospitalization)
  Sender: FDA-Public Use
  Company Number: JP-MERCK-1109USA01541

PATIENT
  Age: 83 Year
  Sex: Female
  Weight: 53 kg

DRUGS (21)
  1. AMLODIPINE TOWA [Concomitant]
     Indication: HYPERTENSION
     Dosage: THE DIVIDED DOSE FREQUENCY WAS UNKNOWN
     Route: 048
     Dates: start: 20040101, end: 20110822
  2. ASPIRIN [Concomitant]
     Indication: ANGINA PECTORIS
     Dosage: THE DIVIDED DOSE FREQUENCY WAS UNKNOWN
     Route: 048
     Dates: start: 20040101
  3. MICARDIS [Concomitant]
     Indication: HYPERTENSION
     Dosage: THE DIVIDED DOSE FREQUENCY WAS UNKNOWN
     Route: 048
     Dates: start: 20040101, end: 20110822
  4. REBAMIPIDE [Concomitant]
     Indication: GASTRITIS
     Dosage: THE DIVIDED DOSE FREQUENCY WAS UNKNOWN
     Route: 048
     Dates: start: 20040101, end: 20110822
  5. ALLOPURINOL [Concomitant]
     Indication: HYPERURICAEMIA
     Dosage: THE DIVIDED DOSE FREQUENCY WAS UNKNOWN
     Route: 048
     Dates: start: 20101027
  6. ZETIA [Suspect]
     Indication: DYSLIPIDAEMIA
     Route: 048
     Dates: start: 20110419, end: 20110822
  7. TETRAMIDE [Concomitant]
     Indication: DEPRESSION
     Dosage: THE DIVIDED DOSE FREQUENCY WAS UNCERTAIN
     Route: 048
     Dates: start: 20100201, end: 20110822
  8. JANUVIA [Concomitant]
     Indication: DIABETES MELLITUS
     Dosage: THE DIVIDED DOSE FREQUENCY WAS UNKNOWN
     Route: 048
     Dates: start: 20100701, end: 20110822
  9. FRANDOL TAPE S [Concomitant]
     Indication: ANGINA PECTORIS
     Dosage: THE DIVIDED DOSE FREQUENCY WAS UNKNOWN
     Route: 061
     Dates: start: 20100304
  10. AMARYL [Concomitant]
     Indication: DIABETES MELLITUS
     Dosage: THE DIVIDED DOSE FREQUENCY WAS UNKNOWN
     Route: 048
     Dates: start: 20110315, end: 20110822
  11. SEROQUEL [Concomitant]
     Indication: SCHIZOPHRENIA
     Dosage: THE DIVIDED DOSE FREQUENCY WAS UNKNOWN
     Route: 048
     Dates: start: 20100201, end: 20110822
  12. CARVEDILOL [Concomitant]
     Indication: LEFT VENTRICLE OUTFLOW TRACT OBSTRUCTION
     Dosage: THE DIVIDED DOSE FREQUENCY WAS UNKNOWN
     Route: 048
     Dates: start: 20090330, end: 20110822
  13. DIGOXIN [Concomitant]
     Indication: CARDIAC FAILURE
     Dosage: THE DIVIDED DOSE FREQUENCY WAS UNKNOWN
     Route: 048
     Dates: start: 20040101, end: 20110822
  14. ALDACTONE [Concomitant]
     Indication: CARDIAC FAILURE
     Dosage: THE DIVIDED DOSE FREQUENCY WAS UNKNOWN
     Route: 048
     Dates: start: 20040101, end: 20110822
  15. ARICEPT [Concomitant]
     Indication: DEMENTIA
     Dosage: THE DIVIDED DOSE FREQUENCY WAS UNKNOWN
     Route: 048
     Dates: start: 20040101, end: 20110822
  16. LANSOPRAZOLE [Concomitant]
     Indication: GASTROOESOPHAGEAL REFLUX DISEASE
     Dosage: THE DIVIDED DOSE FREQUENCY WAS UNKNOWN
     Route: 048
     Dates: start: 20090610
  17. SIGMART [Concomitant]
     Indication: ANGINA PECTORIS
     Dosage: THE DIVIDED DOSE FREQUENCY WAS UNKNOWN
     Route: 048
     Dates: start: 20040101, end: 20110822
  18. ZOLPIDEM [Concomitant]
     Indication: INSOMNIA
     Dosage: THE DIVIDED DOSE FREQUENCY WAS UNKNOWN
     Route: 048
     Dates: start: 20040101, end: 20110822
  19. LASIX [Concomitant]
     Indication: CARDIAC FAILURE
     Dosage: THE DIVIDED DOSE FREQUENCY WAS UNKNOWN
     Route: 048
     Dates: start: 20040101, end: 20110822
  20. YOKU-KAN-SAN [Concomitant]
     Indication: NEUROSIS
     Dosage: THE DIVIDED DOSE FREQUENCY WAS UNKNOWN
     Route: 048
     Dates: start: 20100201, end: 20110822
  21. DIART [Concomitant]
     Indication: CARDIAC FAILURE
     Dosage: THE DIVIDED DOSE FREQUENCY WAS UNKNOWN
     Route: 048
     Dates: start: 20110712

REACTIONS (2)
  - RENAL FAILURE ACUTE [None]
  - RHABDOMYOLYSIS [None]
